FAERS Safety Report 22526542 (Version 1)
Quarter: 2023Q2

REPORT INFORMATION
  Report Type: Spontaneous
  Country: DE (occurrence: DE)
  Receive Date: 20230606
  Receipt Date: 20230606
  Transmission Date: 20230722
  Serious: Yes (Death, Other)
  Sender: FDA-Public Use
  Company Number: DE-DSJP-DSE-2023-122356

PATIENT
  Sex: Female

DRUGS (3)
  1. ENHERTU [Suspect]
     Active Substance: FAM-TRASTUZUMAB DERUXTECAN-NXKI
     Indication: HER2 positive breast cancer
     Dosage: UNK
     Route: 065
     Dates: start: 20230324
  2. ENHERTU [Suspect]
     Active Substance: FAM-TRASTUZUMAB DERUXTECAN-NXKI
     Indication: Breast cancer metastatic
  3. DEXAMETHASONE [Concomitant]
     Active Substance: DEXAMETHASONE
     Indication: Metastases to central nervous system
     Dosage: (3X4 MG), QD
     Route: 065
     Dates: start: 202301

REACTIONS (6)
  - Pneumocystis jirovecii infection [Fatal]
  - Pulmonary embolism [Fatal]
  - Pleural effusion [Fatal]
  - Pneumothorax [Fatal]
  - Ascites [Fatal]
  - Pneumonia [Fatal]

NARRATIVE: CASE EVENT DATE: 20230401
